FAERS Safety Report 4534612-1 (Version None)
Quarter: 2004Q4

REPORT INFORMATION
  Report Type: 
  Country: None (occurrence: None)
  Receive Date: 20041214
  Receipt Date: 20040827
  Transmission Date: 20050328
  Serious: No
  Sender: FDA-Public Use
  Company Number: 2004227074US

PATIENT
  Age: 65 Year
  Sex: Female
  Weight: 58.5 kg

DRUGS (5)
  1. BEXTRA [Suspect]
     Indication: BACK PAIN
     Dosage: 10 MG, QD, ORAL
     Route: 048
     Dates: start: 20040727
  2. CALCIUM GLUCONATE [Concomitant]
  3. MULTIVITAMINS (ERGOCALCIFEROL, RETINOL, PANTHENOL) [Concomitant]
  4. ACETYLSALICYLIC ACID SRT [Concomitant]
  5. GLUCOSAMINE [Concomitant]

REACTIONS (1)
  - MUSCLE CRAMP [None]
